FAERS Safety Report 13190856 (Version 2)
Quarter: 2017Q1

REPORT INFORMATION
  Report Type: Spontaneous
  Country: US (occurrence: US)
  Receive Date: 20170206
  Receipt Date: 20170227
  Transmission Date: 20170428
  Serious: Yes (Hospitalization)
  Sender: FDA-Public Use
  Company Number: US-TAIHO ONCOLOGY INC-EU-2017-00172

PATIENT
  Age: 73 Year
  Sex: Female
  Weight: 97.16 kg

DRUGS (8)
  1. LASIX [Concomitant]
     Active Substance: FUROSEMIDE
  2. LISINOPRIL. [Concomitant]
     Active Substance: LISINOPRIL
  3. LIPITOR [Concomitant]
     Active Substance: ATORVASTATIN CALCIUM
     Dosage: HS
  4. IMODIUM [Concomitant]
     Active Substance: LOPERAMIDE HYDROCHLORIDE
  5. ACETYLSALICYLIC ACID [Concomitant]
     Active Substance: ASPIRIN
     Dates: end: 20170214
  6. LOPRESSOR [Concomitant]
     Active Substance: METOPROLOL TARTRATE
  7. MIRALAX [Concomitant]
     Active Substance: POLYETHYLENE GLYCOL 3350
  8. LONSURF [Suspect]
     Active Substance: TIPIRACIL HYDROCHLORIDE\TRIFLURIDINE
     Indication: COLORECTAL CANCER METASTATIC
     Dosage: CYCLE 5 STARTED ON 18JAN2017
     Route: 048
     Dates: start: 20160829

REACTIONS (6)
  - Laboratory test abnormal [Unknown]
  - Underdose [Unknown]
  - Dysgeusia [Unknown]
  - Neutropenia [Unknown]
  - Accidental overdose [Recovered/Resolved]
  - Inappropriate schedule of drug administration [Recovered/Resolved]

NARRATIVE: CASE EVENT DATE: 201701
